FAERS Safety Report 12573256 (Version 2)
Quarter: 2016Q3

REPORT INFORMATION
  Report Type: Spontaneous
  Country: RU (occurrence: RU)
  Receive Date: 20160720
  Receipt Date: 20160902
  Transmission Date: 20161109
  Serious: Yes (Hospitalization)
  Sender: FDA-Public Use
  Company Number: RU-SA-2016SA129303

PATIENT
  Age: 5 Month
  Sex: Female
  Weight: 5.1 kg

DRUGS (12)
  1. BISOPROLOL [Concomitant]
     Active Substance: BISOPROLOL
     Dosage: 0,625
  2. KREON [Concomitant]
     Active Substance: PANCRELIPASE
     Dosage: 5-7 GRANULES
  3. ACC [Concomitant]
     Active Substance: ACETYLCYSTEINE
  4. PANANGIN [Concomitant]
     Active Substance: MAGNESIUM ASPARTATE\POTASSIUM ASPARTATE
  5. TRIAMPUR [Concomitant]
     Active Substance: HYDROCHLOROTHIAZIDE\TRIAMTERENE
  6. LASIX [Concomitant]
     Active Substance: FUROSEMIDE
  7. MYOZYME [Suspect]
     Active Substance: ALGLUCOSIDASE ALFA
     Indication: GLYCOGEN STORAGE DISEASE TYPE II
     Route: 041
     Dates: start: 20160610
  8. THROMBO ASS [Concomitant]
     Active Substance: ASPIRIN
  9. MALTOFER [Concomitant]
     Active Substance: IRON POLYMALTOSE
  10. COLECALCIFEROL [Concomitant]
     Active Substance: CHOLECALCIFEROL
  11. CALCIUM D3 [Concomitant]
     Active Substance: CALCIUM\CHOLECALCIFEROL
  12. BIFIFORM [Concomitant]
     Active Substance: BIFIDOBACTERIUM LONGUM

REACTIONS (2)
  - Body temperature increased [Recovered/Resolved]
  - Pneumonia aspiration [Recovered/Resolved]

NARRATIVE: CASE EVENT DATE: 20160712
